FAERS Safety Report 11146692 (Version 2)
Quarter: 2015Q2

REPORT INFORMATION
  Report Type: Spontaneous
  Country: IN (occurrence: None)
  Receive Date: 20150526
  Receipt Date: 20150609
  Transmission Date: 20150821
  Serious: Yes (Life-Threatening, Hospitalization)
  Sender: FDA-Public Use
  Company Number: IPC201505-000323

PATIENT
  Age: 43 Year
  Sex: Female
  Weight: 94 kg

DRUGS (5)
  1. METOCLOPRAMIDE HYDROCHLORIDE (METOCLOPRAMIDE HYDROCHLORIDE) (METOCLOPRAMIDE HYDROCHLORIDE) [Suspect]
     Active Substance: METOCLOPRAMIDE HYDROCHLORIDE
     Indication: NAUSEA
     Dosage: 2 ML (10 MG) SLOW AS BOLUS
     Dates: start: 201501
  2. LASIX [Concomitant]
     Active Substance: FUROSEMIDE
  3. EFCORLIN (HYDROCORTISONE) [Concomitant]
  4. METOCLOPRAMIDE HYDROCHLORIDE (METOCLOPRAMIDE HYDROCHLORIDE) (METOCLOPRAMIDE HYDROCHLORIDE) [Suspect]
     Active Substance: METOCLOPRAMIDE HYDROCHLORIDE
     Indication: VOMITING
     Dosage: 2 ML (10 MG) SLOW AS BOLUS
     Dates: start: 201501
  5. ATROPINE [Concomitant]
     Active Substance: ATROPINE

REACTIONS (8)
  - Cyanosis [None]
  - Loss of consciousness [None]
  - Oxygen saturation decreased [None]
  - Dyspnoea [None]
  - Bradycardia [None]
  - Dizziness [None]
  - Coma [None]
  - Hypotension [None]
